FAERS Safety Report 10188398 (Version 1)
Quarter: 2014Q2

REPORT INFORMATION
  Report Type: Spontaneous
  Country: US (occurrence: US)
  Receive Date: 20140522
  Receipt Date: 20140522
  Transmission Date: 20141212
  Serious: No
  Sender: FDA-Public Use
  Company Number: US-PFIZER INC-2014139270

PATIENT
  Sex: Female

DRUGS (4)
  1. PREMARIN [Suspect]
     Indication: ATROPHIC VULVOVAGINITIS
     Dosage: UNK
  2. PREMARIN [Suspect]
     Indication: DYSPAREUNIA
  3. ESTRACE [Suspect]
     Dosage: UNK
  4. VAGIFEM [Suspect]
     Dosage: UNK

REACTIONS (1)
  - Drug effect incomplete [Unknown]
